FAERS Safety Report 11081086 (Version 3)
Quarter: 2015Q2

REPORT INFORMATION
  Report Type: Spontaneous
  Country: CZ (occurrence: CZ)
  Receive Date: 20150501
  Receipt Date: 20150521
  Transmission Date: 20150821
  Serious: Yes (Hospitalization, Other)
  Sender: FDA-Public Use
  Company Number: CZ-PFIZER INC-2015140205

PATIENT
  Age: 4 Year
  Sex: Male
  Weight: 13.5 kg

DRUGS (2)
  1. GENOTROPIN [Suspect]
     Active Substance: SOMATROPIN
     Dosage: 0.5 MG, 1X/DAY
     Dates: start: 201412, end: 201503
  2. GENOTROPIN [Suspect]
     Active Substance: SOMATROPIN
     Indication: FOETAL GROWTH RESTRICTION
     Dosage: 0.033-0.035 MG/KG/D
     Dates: start: 201311

REACTIONS (1)
  - Medulloblastoma [Not Recovered/Not Resolved]
